FAERS Safety Report 5921511-3 (Version None)
Quarter: 2008Q4

REPORT INFORMATION
  Report Type: 
  Country: None (occurrence: None)
  Receive Date: 20081017
  Receipt Date: 20081006
  Transmission Date: 20090506
  Serious: Yes (Hospitalization)
  Sender: FDA-Public Use
  Company Number: FR-JNJFOC-20081002893

PATIENT
  Sex: Male

DRUGS (24)
  1. IXPRIM [Suspect]
     Indication: PAIN
     Route: 048
  2. LIPANTHYL [Suspect]
     Indication: DYSLIPIDAEMIA
     Route: 048
  3. HEPARIN [Concomitant]
  4. METRONIDAZOLE [Concomitant]
  5. OGASTRO [Concomitant]
  6. PLAVIX [Concomitant]
  7. COUMADIN [Concomitant]
  8. VENTOLIN [Concomitant]
  9. TARDYFERON [Concomitant]
  10. FOLIC ACID [Concomitant]
  11. LASIX [Concomitant]
  12. NEXIUM [Concomitant]
  13. ZESTORETIC [Concomitant]
  14. THEOSTAT [Concomitant]
  15. ACETAMINOPHEN AND CODEINE PHOSPHATE [Concomitant]
  16. XATRAL [Concomitant]
  17. TADENAN [Concomitant]
  18. TANAKAN [Concomitant]
  19. SEGLOR [Concomitant]
  20. PECTIBRAN [Concomitant]
  21. GLUCOSE [Concomitant]
  22. SODIUM CHLORIDE INJ [Concomitant]
  23. FLAGYL [Concomitant]
  24. ROCEPHIN [Concomitant]

REACTIONS (1)
  - SKIN EXFOLIATION [None]
